FAERS Safety Report 6221835-9 (Version None)
Quarter: 2009Q2

REPORT INFORMATION
  Report Type: 
  Country: None (occurrence: None)
  Receive Date: 20090609
  Receipt Date: 20090529
  Transmission Date: 20091009
  Serious: Yes (Other)
  Sender: FDA-Public Use
  Company Number: US-WYE-H07825909

PATIENT
  Age: 54 Year
  Sex: Female

DRUGS (5)
  1. PREMPRO (CONJUGATED ESTROGENS/MEDROXYROGESTERONE ACETATE, TABLET, UNSP [Suspect]
     Indication: HORMONE REPLACEMENT THERAPY
  2. FEMHRT [Suspect]
  3. OGEN [Suspect]
  4. PREMARIN [Suspect]
  5. PROVERA [Suspect]

REACTIONS (2)
  - CONTRALATERAL BREAST CANCER [None]
  - UTERINE CANCER [None]
